FAERS Safety Report 7919841-9 (Version None)
Quarter: 2011Q4

REPORT INFORMATION
  Report Type: 
  Country: None (occurrence: None)
  Receive Date: 20111117
  Receipt Date: 20111117
  Transmission Date: 20120403
  Serious: Yes (Other)
  Sender: FDA-Public Use
  Company Number: None

PATIENT
  Age: 78 Year
  Sex: Male
  Weight: 65.77 kg

DRUGS (1)
  1. TRAMADOL HCL [Suspect]
     Indication: BACK PAIN

REACTIONS (5)
  - NAUSEA [None]
  - GASTROENTERITIS VIRAL [None]
  - MOVEMENT DISORDER [None]
  - DIZZINESS [None]
  - DISORIENTATION [None]
